FAERS Safety Report 11101921 (Version 1)
Quarter: 2015Q2

REPORT INFORMATION
  Report Type: Spontaneous
  Country: US (occurrence: US)
  Receive Date: 20150510
  Receipt Date: 20150510
  Transmission Date: 20150821
  Serious: No
  Sender: FDA-Public Use
  Company Number: US-ASTRAZENECA-2015SE39374

PATIENT
  Age: 29479 Day
  Sex: Male
  Weight: 101.6 kg

DRUGS (3)
  1. SYMBICORT [Suspect]
     Active Substance: BUDESONIDE\FORMOTEROL FUMARATE DIHYDRATE
     Indication: ASTHMA
     Dosage: 80/4.5 UG, TWO PUFFS, TWO TIMES A DAY
     Route: 055
     Dates: start: 20150413, end: 20150413
  2. SYMBICORT [Suspect]
     Active Substance: BUDESONIDE\FORMOTEROL FUMARATE DIHYDRATE
     Indication: ASTHMA
     Dosage: 80/4.5 UG, ONE PUFF, DAILY
     Route: 055
     Dates: start: 20150414, end: 20150414
  3. SYMBICORT [Suspect]
     Active Substance: BUDESONIDE\FORMOTEROL FUMARATE DIHYDRATE
     Indication: ASTHMA
     Dosage: 80/4.5 UG, TWO PUFFS, TWO TIMES A DAY
     Route: 055
     Dates: start: 20150421

REACTIONS (4)
  - Intentional product misuse [Unknown]
  - Stomatitis [Unknown]
  - Intentional product misuse [Recovered/Resolved]
  - Drug hypersensitivity [Unknown]

NARRATIVE: CASE EVENT DATE: 20150414
